FAERS Safety Report 21906085 (Version 1)
Quarter: 2023Q1

REPORT INFORMATION
  Report Type: Spontaneous
  Country: CA (occurrence: CA)
  Receive Date: 20230124
  Receipt Date: 20230124
  Transmission Date: 20230418
  Serious: Yes (Other)
  Sender: FDA-Public Use
  Company Number: CA-SAMSUNG BIOEPIS-SB-2023-01474

PATIENT
  Age: 50 Year
  Sex: Male

DRUGS (2)
  1. TRASTUZUMAB [Suspect]
     Active Substance: TRASTUZUMAB
     Indication: Salivary gland cancer
     Dosage: UNKNOWN
     Route: 065
  2. KADCYLA [Suspect]
     Active Substance: ADO-TRASTUZUMAB EMTANSINE
     Indication: Salivary gland cancer
     Dosage: POWDER FOR SOLUTION
     Route: 042

REACTIONS (4)
  - Infection [Unknown]
  - Device issue [Unknown]
  - Off label use [Unknown]
  - Product use in unapproved indication [Unknown]
